FAERS Safety Report 5301936-X (Version None)
Quarter: 2007Q2

REPORT INFORMATION
  Report Type: 
  Country: None (occurrence: None)
  Receive Date: 20070416
  Receipt Date: 20070416
  Transmission Date: 20071010
  Serious: Yes (Hospitalization)
  Sender: FDA-Public Use
  Company Number: None

PATIENT
  Sex: Male
  Weight: 104.3273 kg

DRUGS (1)
  1. REMICADE [Suspect]
     Indication: PSORIATIC ARTHROPATHY
     Dosage: 500MG Q8 WEEKS IV
     Route: 042
     Dates: start: 20030110, end: 20061109

REACTIONS (3)
  - PLEURAL EFFUSION [None]
  - PYREXIA [None]
  - TUBERCULOSIS SKIN TEST POSITIVE [None]
